FAERS Safety Report 6975586-3 (Version None)
Quarter: 2010Q3

REPORT INFORMATION
  Report Type: 
  Country: None (occurrence: None)
  Receive Date: 20100910
  Receipt Date: 20100907
  Transmission Date: 20110219
  Serious: Yes (Life-Threatening, Hospitalization)
  Sender: FDA-Public Use
  Company Number: DE-BRISTOL-MYERS SQUIBB COMPANY-15235559

PATIENT
  Age: 50 Year
  Sex: Female
  Weight: 84 kg

DRUGS (11)
  1. CISPLATIN [Suspect]
     Indication: NON-SMALL CELL LUNG CANCER
     Dosage: RECENT ADMN:23JUL2010,06AUG10 STRENGTH 1MG/1ML
     Route: 042
     Dates: start: 20100611, end: 20100824
  2. TAXOL [Suspect]
     Indication: NON-SMALL CELL LUNG CANCER
     Dosage: RECENT ADMN:23JUL2010 STRENGTH:6MG/ML
     Route: 042
     Dates: start: 20100611, end: 20100723
  3. VINORELBINE [Suspect]
     Indication: NON-SMALL CELL LUNG CANCER
     Dates: start: 20100824, end: 20100824
  4. RADIOTHERAPY [Suspect]
     Indication: NON-SMALL CELL LUNG CANCER
     Dates: start: 20100823, end: 20100830
  5. DIOVAN HCT [Concomitant]
     Indication: HYPERTENSION
     Dosage: CO DIOVAN 160/25 1DF=1 TAB
     Route: 048
     Dates: start: 20100701
  6. LYRICA [Concomitant]
     Indication: DYSAESTHESIA
     Dosage: LYRICA 75 2DF=2 TAB
     Route: 048
     Dates: start: 20100723
  7. IBUPROFEN [Concomitant]
     Indication: MYALGIA
     Dosage: IBUPROFEN 40 2DF=2 TABS
     Route: 048
     Dates: start: 20100714, end: 20100715
  8. IBUPROFEN [Concomitant]
     Indication: PAIN IN EXTREMITY
     Dosage: IBUPROFEN 40 2DF=2 TABS
     Route: 048
     Dates: start: 20100714, end: 20100715
  9. ALPROSTADIL [Concomitant]
     Indication: ISCHAEMIA
     Dates: start: 20100730
  10. METRONIDAZOLE [Concomitant]
     Dosage: 1DF=500 UNITS NOT SPECIFIED
     Route: 042
     Dates: start: 20100802, end: 20100805
  11. ROCEPHIN [Concomitant]
     Route: 042
     Dates: start: 20100802, end: 20100802

REACTIONS (3)
  - COLITIS [None]
  - FEBRILE NEUTROPENIA [None]
  - PERIPHERAL ISCHAEMIA [None]
